FAERS Safety Report 22103311 (Version 1)
Quarter: 2023Q1

REPORT INFORMATION
  Report Type: Spontaneous
  Country: US (occurrence: None)
  Receive Date: 20230315
  Receipt Date: 20230315
  Transmission Date: 20230417
  Serious: Yes (Disabling, Other)
  Sender: FDA-Public Use
  Company Number: None

PATIENT
  Age: 22 Year
  Sex: Female
  Weight: 65.25 kg

DRUGS (5)
  1. VYVANSE [Suspect]
     Active Substance: LISDEXAMFETAMINE DIMESYLATE
     Indication: Attention deficit hyperactivity disorder
     Dosage: 1 CAPSULE ORAL
     Route: 048
  2. VYVANSE [Suspect]
     Active Substance: LISDEXAMFETAMINE DIMESYLATE
     Indication: Attention deficit hyperactivity disorder
     Dosage: 1 CAPSULE ORAL
     Route: 048
  3. NEXPLANON [Concomitant]
     Active Substance: ETONOGESTREL
  4. MELATONIN [Concomitant]
     Active Substance: MELATONIN
  5. VITAMIN D3 [Concomitant]
     Active Substance: CHOLECALCIFEROL

REACTIONS (19)
  - Anxiety [None]
  - Disturbance in attention [None]
  - Dyskinesia [None]
  - Impulsive behaviour [None]
  - Emotional distress [None]
  - Therapeutic product effect decreased [None]
  - Dry mouth [None]
  - Insomnia [None]
  - Decreased appetite [None]
  - Headache [None]
  - Fatigue [None]
  - Nausea [None]
  - Vomiting [None]
  - Dizziness [None]
  - Loss of personal independence in daily activities [None]
  - Therapy interrupted [None]
  - Disturbance in attention [None]
  - Logorrhoea [None]
  - Feelings of worthlessness [None]

NARRATIVE: CASE EVENT DATE: 20230301
